FAERS Safety Report 9763572 (Version 2)
Quarter: 2014Q1

REPORT INFORMATION
  Report Type: Spontaneous
  Country: IL (occurrence: IL)
  Receive Date: 20131216
  Receipt Date: 20140206
  Transmission Date: 20141002
  Serious: Yes (Hospitalization)
  Sender: FDA-Public Use
  Company Number: US-ASTRAZENECA-2013SE90665

PATIENT
  Age: 7 Month
  Sex: Male

DRUGS (5)
  1. SYNAGIS [Suspect]
     Indication: ANTIVIRAL PROPHYLAXIS
     Route: 030
     Dates: start: 20131105, end: 20131105
  2. SYNAGIS [Suspect]
     Indication: ANTIVIRAL PROPHYLAXIS
     Route: 030
     Dates: start: 20131203
  3. DIPHTERIA/TETANUS/PERTUSSIS VACCINE [Concomitant]
     Indication: IMMUNISATION
     Dates: start: 20131203, end: 20131203
  4. POLIO VACCINE [Concomitant]
     Indication: IMMUNISATION
     Dates: start: 20131203, end: 20131203
  5. INFLUENZA VACCINE [Concomitant]
     Indication: IMMUNISATION
     Dates: start: 20131203, end: 20131203

REACTIONS (8)
  - Otitis media [Unknown]
  - Cough [Not Recovered/Not Resolved]
  - Dyspnoea [Not Recovered/Not Resolved]
  - Asphyxia [Not Recovered/Not Resolved]
  - Blood count abnormal [Unknown]
  - C-reactive protein abnormal [Unknown]
  - Pyrexia [Not Recovered/Not Resolved]
  - Pneumonia [Recovering/Resolving]
